FAERS Safety Report 10012515 (Version 1)
Quarter: 2014Q1

REPORT INFORMATION
  Report Type: Spontaneous
  Country: US (occurrence: US)
  Receive Date: 20140312
  Receipt Date: 20140312
  Transmission Date: 20141002
  Serious: No
  Sender: FDA-Public Use
  Company Number: US-PFIZER INC-2014068693

PATIENT
  Sex: Female

DRUGS (2)
  1. ADVIL [Suspect]
     Indication: DENTAL CARE
     Dosage: UNK
     Dates: start: 20140307
  2. LORATADINE [Suspect]
     Indication: HYPERSENSITIVITY
     Dosage: UNK

REACTIONS (1)
  - Malaise [Unknown]
